FAERS Safety Report 12416982 (Version 1)
Quarter: 2016Q2

REPORT INFORMATION
  Report Type: Spontaneous
  Country: IE (occurrence: IE)
  Receive Date: 20160530
  Receipt Date: 20160530
  Transmission Date: 20160815
  Serious: Yes (Other)
  Sender: FDA-Public Use
  Company Number: IE-JNJFOC-20150317284

PATIENT
  Age: 59 Year
  Sex: Female
  Weight: 76.15 kg

DRUGS (15)
  1. NUPRIN [Concomitant]
     Active Substance: IBUPROFEN
     Route: 065
  2. LYRICA [Concomitant]
     Active Substance: PREGABALIN
     Route: 048
  3. CALCICHEW [Concomitant]
     Active Substance: CALCIUM CARBONATE
     Route: 065
  4. DELTACORTRIL [Concomitant]
     Active Substance: PREDNISOLONE
     Route: 048
  5. CITALOPRAM [Concomitant]
     Active Substance: CITALOPRAM HYDROBROMIDE
     Route: 065
  6. OMEPRAZOLE. [Concomitant]
     Active Substance: OMEPRAZOLE
     Route: 065
  7. IMDUR [Concomitant]
     Active Substance: ISOSORBIDE MONONITRATE
     Route: 065
  8. COLOFAC [Concomitant]
     Active Substance: MEBEVERINE HYDROCHLORIDE
     Route: 065
  9. SIMVASTATIN. [Concomitant]
     Active Substance: SIMVASTATIN
     Route: 048
  10. ASPIRIN. [Concomitant]
     Active Substance: ASPIRIN
     Route: 048
     Dates: start: 20130703
  11. PREDNISOLONE. [Concomitant]
     Active Substance: PREDNISOLONE
     Route: 048
     Dates: start: 20130703
  12. SEPTRIN [Concomitant]
     Active Substance: SULFAMETHOXAZOLE\TRIMETHOPRIM
     Route: 065
  13. STELARA [Suspect]
     Active Substance: USTEKINUMAB
     Indication: TEMPORAL ARTERITIS
     Route: 058
     Dates: start: 201503
  14. ZORCLONE [Concomitant]
     Route: 065
  15. VALOID (CYCLIZINE) [Concomitant]
     Route: 065

REACTIONS (8)
  - Oropharyngeal pain [Unknown]
  - Off label use [Unknown]
  - Respiratory tract infection [Recovering/Resolving]
  - Pain in extremity [Unknown]
  - Synovial cyst [Recovering/Resolving]
  - Peripheral swelling [Not Recovered/Not Resolved]
  - Erythema [Unknown]
  - Oedema peripheral [Unknown]

NARRATIVE: CASE EVENT DATE: 20150320
